FAERS Safety Report 8196566-9 (Version None)
Quarter: 2012Q1

REPORT INFORMATION
  Report Type: 
  Country: None (occurrence: None)
  Receive Date: 20120309
  Receipt Date: 20120301
  Transmission Date: 20120608
  Serious: Yes (Hospitalization)
  Sender: FDA-Public Use
  Company Number: CA-JNJFOC-20120300587

PATIENT
  Sex: Male

DRUGS (4)
  1. METHOTREXATE [Concomitant]
     Route: 048
  2. CELEXA [Concomitant]
     Route: 065
  3. REMICADE [Suspect]
     Indication: PSORIASIS
     Route: 042
     Dates: start: 20110214
  4. CIMETIDINE [Concomitant]
     Route: 048

REACTIONS (3)
  - EAR DISORDER [None]
  - TINNITUS [None]
  - PRURITUS [None]
